FAERS Safety Report 20324354 (Version 1)
Quarter: 2022Q1

REPORT INFORMATION
  Report Type: Report from Study
  Country: CA (occurrence: CA)
  Receive Date: 20220111
  Receipt Date: 20220111
  Transmission Date: 20220423
  Serious: Yes (Other)
  Sender: FDA-Public Use
  Company Number: CA-OTSUKA-2021_009749

PATIENT
  Age: 82 Year
  Sex: Female

DRUGS (1)
  1. CEDAZURIDINE\DECITABINE [Suspect]
     Active Substance: CEDAZURIDINE\DECITABINE
     Indication: Myelodysplastic syndrome
     Dosage: 135 MG (35 MG OF DECITABINE AND 100 MG OF CEDAZURIDINE) QD
     Route: 065
     Dates: start: 20210118

REACTIONS (8)
  - Diarrhoea haemorrhagic [Unknown]
  - Furuncle [Unknown]
  - Asthenia [Unknown]
  - Pain in extremity [Unknown]
  - Diarrhoea [Unknown]
  - Red blood cell count decreased [Unknown]
  - White blood cell count decreased [Unknown]
  - Neutrophil count decreased [Unknown]

NARRATIVE: CASE EVENT DATE: 20211123
